FAERS Safety Report 4352103-8 (Version None)
Quarter: 2004Q2

REPORT INFORMATION
  Report Type: 
  Country: None (occurrence: None)
  Receive Date: 20040409
  Receipt Date: 20040219
  Transmission Date: 20050107
  Serious: No
  Sender: FDA-Public Use
  Company Number: PHEH2004US02157

PATIENT
  Age: 9 Month
  Sex: Female

DRUGS (2)
  1. ELIDEL [Suspect]
     Indication: ECZEMA
     Dosage: BID, TOPICAL
     Route: 061
     Dates: start: 20040101, end: 20040211
  2. ELIDEL [Suspect]
     Indication: ECZEMA
     Dosage: BID, TOPICAL
     Route: 061
     Dates: start: 20040218, end: 20040218

REACTIONS (4)
  - APPLICATION SITE VESICLES [None]
  - HOARSENESS [None]
  - IRRITABILITY [None]
  - RHINORRHOEA [None]
